FAERS Safety Report 9604519 (Version 1)
Quarter: 2013Q4

REPORT INFORMATION
  Report Type: Spontaneous
  Country: US (occurrence: US)
  Receive Date: 20131008
  Receipt Date: 20131008
  Transmission Date: 20140711
  Serious: No
  Sender: FDA-Public Use
  Company Number: US-009507513-1309USA002847

PATIENT
  Age: 57 Year
  Sex: Male

DRUGS (1)
  1. PEGINTRON [Suspect]
     Dosage: 150 REDIPEN
     Route: 058
     Dates: start: 20130821

REACTIONS (3)
  - Injection site pain [Not Recovered/Not Resolved]
  - Rash [Not Recovered/Not Resolved]
  - Diarrhoea [Not Recovered/Not Resolved]
